FAERS Safety Report 20556151 (Version 14)
Quarter: 2022Q4

REPORT INFORMATION
  Report Type: Report from Study
  Country: CA (occurrence: CA)
  Receive Date: 20220304
  Receipt Date: 20221215
  Transmission Date: 20230112
  Serious: Yes (Other)
  Sender: FDA-Public Use
  Company Number: CA-NOVARTISPH-PHHY2018CA012430

PATIENT
  Age: 43 Year
  Sex: Female

DRUGS (36)
  1. XOLAIR [Suspect]
     Active Substance: OMALIZUMAB
     Indication: Chronic spontaneous urticaria
     Dosage: 300 MG, EVERY 4 WEEKS
     Route: 058
     Dates: start: 20180522
  2. XOLAIR [Suspect]
     Active Substance: OMALIZUMAB
     Dosage: 300 MG (EVERY 3 WEEK)
     Route: 058
     Dates: start: 20190826
  3. XOLAIR [Suspect]
     Active Substance: OMALIZUMAB
     Dosage: 300 MG (EVERY 3 WEEK)
     Route: 058
     Dates: start: 20190513
  4. XOLAIR [Suspect]
     Active Substance: OMALIZUMAB
     Dosage: 300 MG (EVERY 3 WEEK)
     Route: 058
     Dates: start: 20191018
  5. XOLAIR [Suspect]
     Active Substance: OMALIZUMAB
     Dosage: 300 MG (EVERY 3 WEEK)
     Route: 058
     Dates: start: 20190313
  6. XOLAIR [Suspect]
     Active Substance: OMALIZUMAB
     Dosage: 300 MG (EVERY 3 WEEK)
     Route: 058
     Dates: start: 20200826
  7. XOLAIR [Suspect]
     Active Substance: OMALIZUMAB
     Dosage: 300 MG,EVERY 4 WEEKS
     Route: 058
  8. XOLAIR [Suspect]
     Active Substance: OMALIZUMAB
     Dosage: UNK
     Route: 065
     Dates: start: 20210416
  9. XOLAIR [Suspect]
     Active Substance: OMALIZUMAB
     Dosage: 300 MG,EVERY 4 WEEKS
     Route: 058
  10. XOLAIR [Suspect]
     Active Substance: OMALIZUMAB
     Dosage: 300 MG, Q3W
     Route: 058
     Dates: start: 20210426
  11. XOLAIR [Suspect]
     Active Substance: OMALIZUMAB
     Dosage: 300 MG (EVERY 4 WEEKS)
     Route: 058
  12. XOLAIR [Suspect]
     Active Substance: OMALIZUMAB
     Dosage: 300 MG, EVERY 4 WEEKS
     Route: 058
  13. XOLAIR [Suspect]
     Active Substance: OMALIZUMAB
     Dosage: UNK
     Route: 065
     Dates: start: 20211229
  14. XOLAIR [Suspect]
     Active Substance: OMALIZUMAB
     Dosage: 300 MG, 4 WEEKS
     Route: 058
  15. XOLAIR [Suspect]
     Active Substance: OMALIZUMAB
     Dosage: UNK
     Route: 058
     Dates: start: 20220328
  16. XOLAIR [Suspect]
     Active Substance: OMALIZUMAB
     Dosage: 300 MG EVERY 4 WEEKS
     Route: 058
  17. COSENTYX [Suspect]
     Active Substance: SECUKINUMAB
     Indication: Ankylosing spondylitis
     Dosage: 150 MG, Q3W
     Route: 058
     Dates: start: 20170915
  18. COSENTYX [Suspect]
     Active Substance: SECUKINUMAB
     Dosage: UNK
     Route: 065
     Dates: start: 20180718
  19. SINGULAIR [Concomitant]
     Active Substance: MONTELUKAST SODIUM
     Indication: Urticaria chronic
     Dosage: 1 DOSAGE FORM, QD
     Route: 048
     Dates: start: 2017
  20. ALLEGRA [Concomitant]
     Active Substance: FEXOFENADINE HYDROCHLORIDE
     Indication: Product used for unknown indication
     Dosage: UNK
     Route: 065
  21. BENADRYL [Concomitant]
     Active Substance: DIPHENHYDRAMINE HYDROCHLORIDE
     Indication: Product used for unknown indication
     Dosage: UNK
     Route: 065
  22. ZANTAC [Concomitant]
     Active Substance: RANITIDINE HYDROCHLORIDE
     Indication: Product used for unknown indication
     Dosage: UNK
     Route: 065
  23. REACTINE [Concomitant]
     Indication: Product used for unknown indication
     Dosage: 1 DOSAGE FORM, PRN
     Route: 048
  24. RANITIDINE [Concomitant]
     Active Substance: RANITIDINE
     Indication: Urticaria chronic
     Dosage: 50 MG, BID
     Route: 065
  25. ENBREL [Concomitant]
     Active Substance: ETANERCEPT
     Indication: Product used for unknown indication
     Dosage: UNK
     Route: 065
  26. HUMIRA [Concomitant]
     Active Substance: ADALIMUMAB
     Indication: Product used for unknown indication
     Dosage: UNK
     Route: 065
  27. SIMPONI [Concomitant]
     Active Substance: GOLIMUMAB
     Indication: Product used for unknown indication
     Dosage: UNK
     Route: 065
  28. PREDNISONE [Concomitant]
     Active Substance: PREDNISONE
     Indication: Product used for unknown indication
     Dosage: UNK
     Route: 065
  29. TRIMEPRAZINE [Concomitant]
     Active Substance: TRIMEPRAZINE
     Indication: Product used for unknown indication
     Dosage: UNK
     Route: 065
  30. BETAMETHASONE [Concomitant]
     Active Substance: BETAMETHASONE
     Indication: Product used for unknown indication
     Dosage: UNK
     Route: 065
  31. METHOTREXATE [Concomitant]
     Active Substance: METHOTREXATE
     Indication: Product used for unknown indication
     Dosage: UNK
     Route: 065
  32. HYDROCORTISONE [Concomitant]
     Active Substance: HYDROCORTISONE
     Indication: Product used for unknown indication
     Dosage: UNK
     Route: 065
  33. GRAVOL [Concomitant]
     Active Substance: DIMENHYDRINATE
     Indication: Product used for unknown indication
     Dosage: UNK
     Route: 065
  34. OMEPRAZOLE [Concomitant]
     Active Substance: OMEPRAZOLE
     Indication: Product used for unknown indication
     Dosage: UNK
     Route: 065
  35. BUPRENORPHINE [Concomitant]
     Active Substance: BUPRENORPHINE
     Indication: Product used for unknown indication
     Dosage: UNK
     Route: 065
  36. VITAMIN B12 [Concomitant]
     Active Substance: CYANOCOBALAMIN
     Indication: Product used for unknown indication
     Dosage: UNK
     Route: 065

REACTIONS (29)
  - Myocarditis [Unknown]
  - Dyspnoea [Not Recovered/Not Resolved]
  - Chest pain [Not Recovered/Not Resolved]
  - Pain in extremity [Unknown]
  - Fall [Unknown]
  - Mobility decreased [Unknown]
  - Illness [Not Recovered/Not Resolved]
  - Joint injury [Unknown]
  - Dizziness [Unknown]
  - Vomiting [Recovered/Resolved]
  - Nausea [Recovered/Resolved]
  - Rhinorrhoea [Recovering/Resolving]
  - Peripheral swelling [Unknown]
  - Arthritis [Unknown]
  - Malaise [Not Recovered/Not Resolved]
  - Weight decreased [Unknown]
  - Cough [Unknown]
  - COVID-19 [Recovered/Resolved]
  - COVID-19 [Recovered/Resolved]
  - Fatigue [Not Recovered/Not Resolved]
  - Blister [Unknown]
  - Headache [Recovering/Resolving]
  - Pruritus [Not Recovered/Not Resolved]
  - Pyrexia [Recovering/Resolving]
  - Nasopharyngitis [Recovering/Resolving]
  - Urticaria [Not Recovered/Not Resolved]
  - Concussion [Unknown]
  - Off label use [Unknown]
  - Therapeutic product effect decreased [Unknown]

NARRATIVE: CASE EVENT DATE: 20180523
